FAERS Safety Report 7712438-5 (Version None)
Quarter: 2011Q3

REPORT INFORMATION
  Report Type: 
  Country: None (occurrence: None)
  Receive Date: 20110823
  Receipt Date: 20110809
  Transmission Date: 20111222
  Serious: Yes (Other)
  Sender: FDA-Public Use
  Company Number: CIO11014523

PATIENT
  Age: 45 Year
  Sex: Female

DRUGS (1)
  1. PEPTO-BISMOL, FLAVOR UNKNOWN (BISMUTH SUSSALICYLATE 262 MG, CALCIUM CA [Suspect]
     Dosage: ORAL
     Route: 048

REACTIONS (3)
  - PANCREATITIS [None]
  - BLOOD PHOSPHORUS DECREASED [None]
  - METABOLIC ACIDOSIS [None]
